FAERS Safety Report 16430573 (Version 1)
Quarter: 2019Q2

REPORT INFORMATION
  Report Type: Spontaneous
  Country: BR (occurrence: BR)
  Receive Date: 20190614
  Receipt Date: 20190614
  Transmission Date: 20190711
  Serious: Yes (Hospitalization, Other)
  Sender: FDA-Public Use
  Company Number: BR-ABBVIE-19P-020-2707173-00

PATIENT
  Sex: Female
  Weight: 67.5 kg

DRUGS (4)
  1. FLEET ENEMA [Concomitant]
     Active Substance: SODIUM PHOSPHATE, DIBASIC\SODIUM PHOSPHATE, MONOBASIC
     Indication: GASTROINTESTINAL PAIN
  2. DEPAKENE [Suspect]
     Active Substance: VALPROIC ACID
     Indication: SEIZURE
     Dosage: START DATE:5 YEARSAGO;ONGOING;PRESCRIBED BY NEUROLOGIST AFTER DOSAGE INCREASE BY AMBULANCE
     Route: 065
  3. DEPAKENE [Suspect]
     Active Substance: VALPROIC ACID
     Dosage: DOSE:3TABS;DOSE PRESCRIBED BY AMBULANCE.PATIENT FELT DOPED AND NEUROLOGIST DECREASEDDOSAGE
     Route: 065
  4. PHOSFOENEMA [Concomitant]
     Indication: GASTROINTESTINAL PAIN

REACTIONS (17)
  - Off label use [Unknown]
  - Asthenia [Recovered/Resolved]
  - Dysuria [Unknown]
  - Amnesia [Unknown]
  - Product residue present [Unknown]
  - Gastrointestinal disorder [Unknown]
  - Seizure [Recovering/Resolving]
  - Dehydration [Recovered/Resolved]
  - Cough [Unknown]
  - Dysphagia [Unknown]
  - Lethargy [Not Recovered/Not Resolved]
  - Incorrect product formulation administered [Unknown]
  - Bedridden [Not Recovered/Not Resolved]
  - Feeling abnormal [Not Recovered/Not Resolved]
  - Unevaluable event [Recovered/Resolved]
  - Diarrhoea infectious [Recovered/Resolved]
  - Hypophagia [Recovered/Resolved]
